FAERS Safety Report 8998257 (Version 1)
Quarter: 2013Q1

REPORT INFORMATION
  Report Type: Spontaneous
  Country: JP (occurrence: JP)
  Receive Date: 20130104
  Receipt Date: 20130104
  Transmission Date: 20140127
  Serious: Yes (Other)
  Sender: FDA-Public Use
  Company Number: JP-009507513-1212JPN011230

PATIENT
  Age: 70 Year
  Sex: Male

DRUGS (2)
  1. JANUVIA TABLETS 50MG [Suspect]
     Indication: DIABETES MELLITUS
     Dosage: 50 MG, QD
     Route: 048
     Dates: start: 201210
  2. CISPLATIN [Suspect]
     Dosage: DAILU DOSE UNKNOWN, DIVIDED DOSE FREQUENCY U ETC
     Route: 048

REACTIONS (1)
  - Rhabdomyolysis [Recovering/Resolving]
